FAERS Safety Report 19362149 (Version 1)
Quarter: 2021Q2

REPORT INFORMATION
  Report Type: Spontaneous
  Country: AU (occurrence: AU)
  Receive Date: 20210603
  Receipt Date: 20210603
  Transmission Date: 20210717
  Serious: Yes (Other)
  Sender: FDA-Public Use
  Company Number: AU-BEH-2021132288

PATIENT
  Age: 64 Year
  Sex: Male

DRUGS (1)
  1. HUMAN IMMUNOGLOBULIN (INN) [Suspect]
     Active Substance: HUMAN IMMUNOGLOBULIN G
     Indication: DERMATOMYOSITIS
     Dosage: UNK 4 DOSES
     Route: 042

REACTIONS (3)
  - No adverse event [Unknown]
  - Off label use [Unknown]
  - Acute kidney injury [Unknown]
